FAERS Safety Report 16036367 (Version 1)
Quarter: 2019Q1

REPORT INFORMATION
  Report Type: Spontaneous
  Country: US (occurrence: US)
  Receive Date: 20190305
  Receipt Date: 20190305
  Transmission Date: 20190418
  Serious: No
  Sender: FDA-Public Use
  Company Number: US-ALLERGAN-1844773US

PATIENT
  Sex: Female

DRUGS (2)
  1. ESTRACE [Suspect]
     Active Substance: ESTRADIOL
     Dosage: PRESCRIBED DOSE: 1 DOSE, EVERY 4 DAYS BUT SOMETIMES DID NOT USE THE FULL GRAM
     Route: 067
     Dates: start: 201804
  2. ESTRACE [Suspect]
     Active Substance: ESTRADIOL
     Indication: HORMONE REPLACEMENT THERAPY
     Dosage: 1 G, Q WEEK
     Route: 067

REACTIONS (5)
  - Drug tolerance decreased [Recovered/Resolved]
  - Stress [Recovered/Resolved]
  - Anxiety [Recovered/Resolved]
  - Incorrect dose administered [Unknown]
  - Irritability [Recovered/Resolved]
